FAERS Safety Report 9527216 (Version 1)
Quarter: 2013Q3

REPORT INFORMATION
  Report Type: Spontaneous
  Country: GR (occurrence: GR)
  Receive Date: 20130917
  Receipt Date: 20130917
  Transmission Date: 20140515
  Serious: Yes (Hospitalization, Other)
  Sender: FDA-Public Use
  Company Number: GR-PAR PHARMACEUTICAL, INC-2013SCPR007642

PATIENT
  Sex: 0

DRUGS (1)
  1. METRONIDAZOLE [Suspect]
     Indication: GASTROENTERITIS
     Dosage: 1500 MG, QD FOR 6 MONTHS
     Route: 065

REACTIONS (2)
  - Toxic encephalopathy [Recovered/Resolved]
  - Self-medication [Recovered/Resolved]
